FAERS Safety Report 8375856-0 (Version None)
Quarter: 2012Q2

REPORT INFORMATION
  Report Type: 
  Country: None (occurrence: None)
  Receive Date: 20120522
  Receipt Date: 20120521
  Transmission Date: 20120825
  Serious: Yes (Hospitalization)
  Sender: FDA-Public Use
  Company Number: BE-ABBOTT-12P-013-0901297-00

PATIENT
  Sex: Male
  Weight: 92 kg

DRUGS (2)
  1. HUMIRA [Suspect]
     Indication: ANKYLOSING SPONDYLITIS
     Dates: start: 20080303
  2. FELDENE [Concomitant]
     Indication: SPONDYLITIS
     Dates: start: 19960101, end: 20110205

REACTIONS (1)
  - COLITIS [None]
